FAERS Safety Report 9808179 (Version 1)
Quarter: 2014Q1

REPORT INFORMATION
  Report Type: Spontaneous
  Country: US (occurrence: US)
  Receive Date: 20140110
  Receipt Date: 20140110
  Transmission Date: 20141002
  Serious: Yes (Hospitalization)
  Sender: FDA-Public Use
  Company Number: US-ABBVIE-14P-163-1185675-00

PATIENT
  Age: 76 Year
  Sex: Female
  Weight: 68.1 kg

DRUGS (9)
  1. HUMIRA [Suspect]
     Indication: RHEUMATOID ARTHRITIS
  2. METHOTREXATE [Concomitant]
     Indication: ARTHRITIS
  3. FOLIC ACID [Concomitant]
     Indication: VITAMIN SUPPLEMENTATION
  4. WARFARIN [Concomitant]
     Indication: ATRIAL FIBRILLATION
  5. ATACAND [Concomitant]
     Indication: HYPERTENSION
  6. SYMBICORT [Concomitant]
     Indication: ASTHMA
  7. ALREX [Concomitant]
     Indication: DRY EYE
  8. REPHRESH [Concomitant]
     Indication: DRY EYE
  9. OCUVITE [Concomitant]
     Indication: MACULAR DEGENERATION

REACTIONS (8)
  - Dizziness [Recovered/Resolved]
  - Asthenia [Recovered/Resolved]
  - Feeling cold [Recovered/Resolved]
  - Pneumonia [Recovering/Resolving]
  - Asthma [Recovering/Resolving]
  - Pyrexia [Recovered/Resolved]
  - Chills [Recovered/Resolved]
  - Oxygen saturation decreased [Recovering/Resolving]
